FAERS Safety Report 6263052-2 (Version None)
Quarter: 2009Q3

REPORT INFORMATION
  Report Type: 
  Country: None (occurrence: None)
  Receive Date: 20090708
  Receipt Date: 20090708
  Transmission Date: 20100115
  Serious: Yes (Disabling)
  Sender: FDA-Public Use
  Company Number: None

PATIENT
  Age: 28 Year
  Sex: Male
  Weight: 63.5036 kg

DRUGS (4)
  1. CEPHALEXIN  TEVA [Suspect]
     Indication: POSTOPERATIVE CARE
     Dosage: 500 MG TWICE DAILY PO
     Route: 048
     Dates: start: 20090626, end: 20090703
  2. CEPHALEXIN  TEVA [Suspect]
     Indication: PROPHYLAXIS
     Dosage: 500 MG TWICE DAILY PO
     Route: 048
     Dates: start: 20090626, end: 20090703
  3. MEBEVERINE HCL -COLOFAC- [Concomitant]
  4. VICODIN ES [Concomitant]

REACTIONS (8)
  - ABDOMINAL PAIN [None]
  - BACTERIA STOOL IDENTIFIED [None]
  - DIARRHOEA HAEMORRHAGIC [None]
  - DRUG INEFFECTIVE [None]
  - GASTROINTESTINAL SOUNDS ABNORMAL [None]
  - HYPOPHAGIA [None]
  - MUCOUS STOOLS [None]
  - WEIGHT DECREASED [None]
